FAERS Safety Report 8274478-X (Version None)
Quarter: 2012Q2

REPORT INFORMATION
  Report Type: 
  Country: None (occurrence: None)
  Receive Date: 20120411
  Receipt Date: 20120328
  Transmission Date: 20120825
  Serious: Yes (Hospitalization)
  Sender: FDA-Public Use
  Company Number: JP-ROCHE-1039756

PATIENT
  Age: 34 Year
  Sex: Female

DRUGS (4)
  1. XELODA [Suspect]
     Indication: BREAST CANCER METASTATIC
     Dosage: DOSAGE IS UNCERTAIN.
     Route: 048
     Dates: start: 20110101, end: 20120210
  2. TYKERB [Suspect]
     Route: 048
     Dates: start: 20120310
  3. TYKERB [Suspect]
     Indication: BREAST CANCER METASTATIC
     Dosage: DOSAGE IS UNCERTAIN.
     Route: 048
  4. XELODA [Suspect]
     Route: 048
     Dates: start: 20120310

REACTIONS (3)
  - DIPLEGIA [None]
  - MYELITIS [None]
  - MONOPLEGIA [None]
